FAERS Safety Report 18312549 (Version 1)
Quarter: 2020Q3

REPORT INFORMATION
  Report Type: Spontaneous
  Country: US (occurrence: US)
  Receive Date: 20200925
  Receipt Date: 20200925
  Transmission Date: 20201103
  Serious: Yes (Other)
  Sender: FDA-Public Use
  Company Number: US-HIKMA PHARMACEUTICALS USA INC.-US-H14001-20-04374

PATIENT
  Sex: Male

DRUGS (1)
  1. METHADONE [Suspect]
     Active Substance: METHADONE HYDROCHLORIDE
     Indication: PRODUCT USED FOR UNKNOWN INDICATION
     Dosage: UNKNOWN
     Route: 065

REACTIONS (24)
  - Somnolence [Unknown]
  - Fatigue [Unknown]
  - Hypoaesthesia [Unknown]
  - Pelvic pain [Unknown]
  - Cardiac failure congestive [Unknown]
  - Mood swings [Unknown]
  - Dry eye [Unknown]
  - Angina pectoris [Unknown]
  - Neuropathy peripheral [Unknown]
  - Rhinorrhoea [Unknown]
  - Vision blurred [Unknown]
  - Dyspnoea [Unknown]
  - Abdominal pain upper [Unknown]
  - Burning sensation [Unknown]
  - Blood cholesterol increased [Unknown]
  - Inflammation [Unknown]
  - Hypertension [Unknown]
  - Deafness [Unknown]
  - Eye irritation [Unknown]
  - Lymphadenopathy [Unknown]
  - Headache [Unknown]
  - Small cell lung cancer [Unknown]
  - Decreased appetite [Unknown]
  - Tooth loss [Unknown]
